FAERS Safety Report 7930256-X (Version None)
Quarter: 2011Q4

REPORT INFORMATION
  Report Type: 
  Country: None (occurrence: None)
  Receive Date: 20111121
  Receipt Date: 20111116
  Transmission Date: 20120403
  Serious: Yes (Other)
  Sender: FDA-Public Use
  Company Number: US-TEVA-302347USA

PATIENT
  Sex: Female

DRUGS (1)
  1. CLARAVIS [Suspect]
     Dosage: 90 MILLIGRAM;
     Route: 048
     Dates: start: 20110606, end: 20110922

REACTIONS (1)
  - UNINTENDED PREGNANCY [None]
